FAERS Safety Report 23783969 (Version 3)
Quarter: 2025Q1

REPORT INFORMATION
  Report Type: Spontaneous
  Country: US (occurrence: US)
  Receive Date: 20240425
  Receipt Date: 20250313
  Transmission Date: 20250409
  Serious: No
  Sender: SANOFI AVENTIS
  Company Number: US-SA-2024SA120227

PATIENT
  Age: 3 Year
  Sex: Male
  Weight: 14.966 kg

DRUGS (12)
  1. CEREZYME [Suspect]
     Active Substance: IMIGLUCERASE
     Indication: Gaucher^s disease
     Dosage: 800 U, QOW
     Route: 042
     Dates: start: 20230802
  2. EPINEPHRINE [Concomitant]
     Active Substance: EPINEPHRINE
  3. FAMOTIDINE [Concomitant]
     Active Substance: FAMOTIDINE
  4. SODIUM CHLORIDE [Concomitant]
     Active Substance: SODIUM CHLORIDE
  5. STERILE WATER [Concomitant]
     Active Substance: WATER
  6. SODIUM CHLORIDE [Concomitant]
     Active Substance: SODIUM CHLORIDE
  7. IRON [Concomitant]
     Active Substance: IRON
  8. HEPARIN [Concomitant]
     Active Substance: HEPARIN SODIUM
  9. LIDOCAINE [Concomitant]
     Active Substance: LIDOCAINE
  10. DIPHENHYDRAMINE HYDROCHLORIDE [Concomitant]
     Active Substance: DIPHENHYDRAMINE HYDROCHLORIDE
  11. METHYLPREDNISOLONE [Concomitant]
     Active Substance: METHYLPREDNISOLONE
  12. DIPHENHYDRAMINE [Concomitant]
     Active Substance: DIPHENHYDRAMINE

REACTIONS (3)
  - Epistaxis [Unknown]
  - Infusion site swelling [Unknown]
  - Device dislocation [Unknown]

NARRATIVE: CASE EVENT DATE: 20240501
